FAERS Safety Report 6603064-X (Version None)
Quarter: 2010Q1

REPORT INFORMATION
  Report Type: 
  Country: None (occurrence: None)
  Receive Date: 20100226
  Receipt Date: 20100219
  Transmission Date: 20100710
  Serious: Yes (Other)
  Sender: FDA-Public Use
  Company Number: PHHY2010BR10086

PATIENT
  Age: 63 Year
  Sex: Female
  Weight: 85 kg

DRUGS (3)
  1. GALVUS MET [Suspect]
     Indication: TYPE 2 DIABETES MELLITUS
     Dosage: 1 DF, BID (LUNCH AND DINNER)
     Dates: start: 20091001
  2. INSULIN [Concomitant]
     Dosage: 30 UI IN THE MORNING, 28 UI IN THE EVENING AND 10 UI AT NIGHT
  3. INSULIN [Concomitant]
     Dosage: 30 UI IN THE MORNING, 25 UI IN THE EVENING AND 25 UI AT NIGHT

REACTIONS (1)
  - HYPERGLYCAEMIA [None]
